FAERS Safety Report 11174174 (Version 1)
Quarter: 2015Q2

REPORT INFORMATION
  Report Type: Spontaneous
  Country: US (occurrence: US)
  Receive Date: 20150609
  Receipt Date: 20150609
  Transmission Date: 20150821
  Serious: No
  Sender: FDA-Public Use
  Company Number: US-ELI_LILLY_AND_COMPANY-US200512000840

PATIENT
  Sex: Male

DRUGS (9)
  1. STRATTERA [Suspect]
     Active Substance: ATOMOXETINE HYDROCHLORIDE
     Dosage: 10 MG, 2/D
  2. STRATTERA [Suspect]
     Active Substance: ATOMOXETINE HYDROCHLORIDE
     Indication: DEPRESSION
     Dosage: 10 MG, OTHER
     Route: 065
     Dates: start: 200407
  3. STRATTERA [Suspect]
     Active Substance: ATOMOXETINE HYDROCHLORIDE
     Dosage: 10 MG, QOD
  4. RANITIDINE [Concomitant]
     Active Substance: RANITIDINE\RANITIDINE HYDROCHLORIDE
     Indication: HYPERCHLORHYDRIA
  5. ABILIFY [Concomitant]
     Active Substance: ARIPIPRAZOLE
  6. FAMCICLOVIR. [Concomitant]
     Active Substance: FAMCICLOVIR
  7. STRATTERA [Suspect]
     Active Substance: ATOMOXETINE HYDROCHLORIDE
     Dosage: 10 MG, WEEKLY (1/W)
  8. ZYPREXA [Suspect]
     Active Substance: OLANZAPINE
  9. EUCERIN                            /00021201/ [Concomitant]
     Active Substance: SALICYLIC ACID
     Indication: DRY SKIN

REACTIONS (9)
  - Amnesia [Recovered/Resolved]
  - Mania [Recovered/Resolved]
  - Hypersensitivity [Unknown]
  - Dry skin [Unknown]
  - Skin tightness [Unknown]
  - Confusional state [Unknown]
  - Formication [Unknown]
  - Psychomotor hyperactivity [Unknown]
  - Off label use [Not Recovered/Not Resolved]
